FAERS Safety Report 18548389 (Version 2)
Quarter: 2020Q4

REPORT INFORMATION
  Report Type: Spontaneous
  Country: US (occurrence: US)
  Receive Date: 20201125
  Receipt Date: 20201229
  Transmission Date: 20210114
  Serious: Yes (Other)
  Sender: FDA-Public Use
  Company Number: US-009507513-2011USA013261

PATIENT
  Sex: Female

DRUGS (2)
  1. DIFICID [Suspect]
     Active Substance: FIDAXOMICIN
     Dosage: UNK
     Dates: start: 2020
  2. ZINPLAVA [Suspect]
     Active Substance: BEZLOTOXUMAB
     Dosage: UNK
     Dates: start: 20201028

REACTIONS (2)
  - Drug ineffective [Unknown]
  - Colectomy total [Unknown]

NARRATIVE: CASE EVENT DATE: 2020
